FAERS Safety Report 6073129-2 (Version None)
Quarter: 2009Q1

REPORT INFORMATION
  Report Type: 
  Country: None (occurrence: None)
  Receive Date: 20090211
  Receipt Date: 20090130
  Transmission Date: 20090719
  Serious: Yes (Other)
  Sender: FDA-Public Use
  Company Number: US-BAYER-200912663NA

PATIENT
  Age: 67 Year
  Sex: Female
  Weight: 100 kg

DRUGS (1)
  1. ULTRAVIST 370 [Suspect]
     Indication: ANGIOGRAM
     Dosage: TOTAL DAILY DOSE: 150 ML  UNIT DOSE: 500 ML
     Route: 042
     Dates: start: 20090130, end: 20090130

REACTIONS (3)
  - ERYTHEMA [None]
  - PRURITUS [None]
  - THROAT IRRITATION [None]
